FAERS Safety Report 7691182-7 (Version None)
Quarter: 2011Q3

REPORT INFORMATION
  Report Type: 
  Country: None (occurrence: None)
  Receive Date: 20110815
  Receipt Date: 20110802
  Transmission Date: 20111222
  Serious: Yes (Hospitalization)
  Sender: FDA-Public Use
  Company Number: TCI2011A03314

PATIENT
  Age: 69 Year
  Sex: Male

DRUGS (3)
  1. LANSOPRAZOLE [Suspect]
     Indication: GASTRIC ULCER
     Dosage: 30 MG (15 MG,2 IN 1 D)
     Route: 048
     Dates: start: 20090801
  2. VOLTRAN SR (DICLOFENAC SODIUM) [Suspect]
     Indication: ANKYLOSING SPONDYLITIS
     Dosage: 2 CAP. (1 CAP., 2 IN 1 D)
     Route: 048
     Dates: start: 19970101, end: 20091130
  3. VOLTRAN SR (DICLOFENAC SODIUM) [Suspect]
     Indication: ANKYLOSING SPONDYLITIS
     Dosage: 2 CAP. (1 CAP., 2 IN 1 D)
     Route: 048
     Dates: start: 20100401

REACTIONS (7)
  - COLITIS MICROSCOPIC [None]
  - WEIGHT DECREASED [None]
  - SCAR [None]
  - GASTRIC ULCER [None]
  - SPONDYLITIS [None]
  - HYPOPROTEINAEMIA [None]
  - CONDITION AGGRAVATED [None]
